FAERS Safety Report 6193406-4 (Version None)
Quarter: 2009Q2

REPORT INFORMATION
  Report Type: 
  Country: None (occurrence: None)
  Receive Date: 20090518
  Receipt Date: 20080710
  Transmission Date: 20091009
  Serious: No
  Sender: FDA-Public Use
  Company Number: US-ABBOTT-08P-163-0433857-00

PATIENT
  Sex: Female

DRUGS (3)
  1. AZMACORT [Suspect]
     Indication: SJOGREN'S SYNDROME
     Route: 055
     Dates: start: 20071227, end: 20080109
  2. TRIAMCINOLONE ACETONIDE [Suspect]
     Indication: ALLERGIC SINUSITIS
     Route: 045
     Dates: start: 19930101
  3. PREDNISONE [Concomitant]
     Indication: SJOGREN'S SYNDROME
     Route: 048

REACTIONS (1)
  - SENSORY DISTURBANCE [None]
